FAERS Safety Report 4423059-4 (Version None)
Quarter: 2004Q3

REPORT INFORMATION
  Report Type: 
  Country: None (occurrence: None)
  Receive Date: 20040806
  Receipt Date: 20040726
  Transmission Date: 20050211
  Serious: Yes (Hospitalization)
  Sender: FDA-Public Use
  Company Number: JP-JNJFOC-20040506140

PATIENT
  Age: 26 Year
  Sex: Female

DRUGS (9)
  1. RISPERDAL [Suspect]
     Indication: SCHIZOPHRENIA
     Dosage: SEE IMAGE
     Route: 048
     Dates: start: 20040322, end: 20040416
  2. RISPERDAL [Suspect]
     Indication: SCHIZOPHRENIA
     Dosage: SEE IMAGE
     Route: 048
     Dates: start: 20040417, end: 20040629
  3. RISPERDAL [Suspect]
     Indication: SCHIZOPHRENIA
     Dosage: SEE IMAGE
     Route: 048
     Dates: start: 20040630
  4. BIPERIDEN HYDROCHLORIDE TAB [Concomitant]
  5. BROMOCRIPTINE MESYLATE [Concomitant]
  6. BROTIZOLAM (BROTIZOLAM) [Concomitant]
  7. ETHYL LOFLAZEPATE (ETHYL LOFLAZEPATE) [Concomitant]
  8. DIAZEPAM [Concomitant]
  9. CHLORROMAZINE HYDROCHLORIDE (CHLORPROMAZINE HYDROCHLORIDE) [Concomitant]

REACTIONS (4)
  - HYPERPROLACTINAEMIA [None]
  - METRORRHAGIA [None]
  - OVARIAN NEOPLASM [None]
  - PARKINSON'S DISEASE [None]
